FAERS Safety Report 7833652-4 (Version None)
Quarter: 2011Q4

REPORT INFORMATION
  Report Type: 
  Country: None (occurrence: None)
  Receive Date: 20111024
  Receipt Date: 20111020
  Transmission Date: 20120403
  Serious: Yes (Other)
  Sender: FDA-Public Use
  Company Number: US-BAYER-2011-101546

PATIENT
  Age: 62 Year
  Sex: Male
  Weight: 86 kg

DRUGS (2)
  1. NAPROXEN SODIUM [Suspect]
     Indication: ANALGESIC THERAPY
     Dosage: 2 DF, ONCE
     Route: 048
     Dates: start: 20111017, end: 20111017
  2. ACETYLSALICYLIC ACID SRT [Concomitant]

REACTIONS (10)
  - RASH ERYTHEMATOUS [None]
  - PHARYNGEAL OEDEMA [None]
  - HYPERSENSITIVITY [None]
  - APHASIA [None]
  - DYSPNOEA [None]
  - FALL [None]
  - NAUSEA [None]
  - RASH GENERALISED [None]
  - PARAESTHESIA ORAL [None]
  - PAIN [None]
